FAERS Safety Report 10791746 (Version 2)
Quarter: 2015Q1

REPORT INFORMATION
  Report Type: Spontaneous
  Country: ES (occurrence: ES)
  Receive Date: 20150213
  Receipt Date: 20150316
  Transmission Date: 20150721
  Serious: Yes (Other)
  Sender: FDA-Public Use
  Company Number: ES-ROCHE-1535925

PATIENT
  Age: 50 Year
  Sex: Female

DRUGS (1)
  1. OMALIZUMAB [Suspect]
     Active Substance: OMALIZUMAB
     Indication: ASPIRIN-EXACERBATED RESPIRATORY DISEASE
     Route: 065
     Dates: start: 2008

REACTIONS (1)
  - Asthma [Unknown]
